FAERS Safety Report 7532522-9 (Version None)
Quarter: 2011Q2

REPORT INFORMATION
  Report Type: 
  Country: None (occurrence: None)
  Receive Date: 20110607
  Receipt Date: 20110607
  Transmission Date: 20111010
  Serious: Yes (Hospitalization)
  Sender: FDA-Public Use
  Company Number: None

PATIENT
  Sex: Female
  Weight: 68.4 kg

DRUGS (1)
  1. RECLAST [Suspect]
     Indication: OSTEOPENIA
     Dosage: 5MG
     Dates: start: 20110602, end: 20110602

REACTIONS (8)
  - CHILLS [None]
  - DIARRHOEA [None]
  - TACHYCARDIA [None]
  - PYREXIA [None]
  - NAUSEA [None]
  - ABDOMINAL PAIN [None]
  - DIZZINESS [None]
  - HYPOTENSION [None]
